FAERS Safety Report 21172474 (Version 1)
Quarter: 2022Q3

REPORT INFORMATION
  Report Type: Spontaneous
  Country: FR (occurrence: FR)
  Receive Date: 20220804
  Receipt Date: 20220804
  Transmission Date: 20221027
  Serious: Yes (Other)
  Sender: FDA-Public Use
  Company Number: None

PATIENT
  Age: 54 Year
  Sex: Male

DRUGS (3)
  1. VIAGRA [Suspect]
     Active Substance: SILDENAFIL CITRATE
     Indication: Erectile dysfunction
     Dosage: 100 MG 1 OR 2 TABLETS
     Route: 048
  2. OXYBATE [Suspect]
     Active Substance: OXYBATE
     Dosage: 0.9ML/DOSE
     Route: 065
  3. ALCOHOL [Suspect]
     Active Substance: ALCOHOL
     Dosage: 5 DF, DAILY
     Route: 048

REACTIONS (1)
  - Drug dependence [Not Recovered/Not Resolved]
